FAERS Safety Report 24568097 (Version 1)
Quarter: 2024Q4

REPORT INFORMATION
  Report Type: Spontaneous
  Country: US (occurrence: US)
  Receive Date: 20241031
  Receipt Date: 20241031
  Transmission Date: 20250114
  Serious: No
  Sender: TAKEDA
  Company Number: US-TAKEDA-2024TUS108989

PATIENT
  Age: 25 Year
  Sex: Female

DRUGS (4)
  1. GATTEX [Suspect]
     Active Substance: TEDUGLUTIDE\WATER
     Indication: Short-bowel syndrome
     Dosage: UNK UNK, QD
     Route: 058
     Dates: start: 20241025
  2. GATTEX [Suspect]
     Active Substance: TEDUGLUTIDE\WATER
     Indication: Short-bowel syndrome
     Dosage: UNK UNK, QD
     Route: 058
     Dates: start: 20241025
  3. GATTEX [Suspect]
     Active Substance: TEDUGLUTIDE\WATER
     Indication: Short-bowel syndrome
     Dosage: UNK UNK, QD
     Route: 058
     Dates: start: 20241025
  4. GATTEX [Suspect]
     Active Substance: TEDUGLUTIDE\WATER
     Indication: Short-bowel syndrome
     Dosage: UNK UNK, QD
     Route: 058
     Dates: start: 20241025

REACTIONS (1)
  - Abdominal pain [Recovering/Resolving]
